FAERS Safety Report 16736685 (Version 2)
Quarter: 2021Q1

REPORT INFORMATION
  Report Type: Report from Study
  Country: CA (occurrence: CA)
  Receive Date: 20190823
  Receipt Date: 20210323
  Transmission Date: 20210419
  Serious: Yes (Hospitalization, Other)
  Sender: FDA-Public Use
  Company Number: CA-PFIZER INC-2019358575

PATIENT
  Age: 69 Year
  Sex: Female
  Weight: 71.8 kg

DRUGS (28)
  1. PANTOLOC [PANTOPRAZOLE] [Concomitant]
     Active Substance: PANTOPRAZOLE SODIUM
     Dosage: 40 MG
     Route: 065
  2. VOLTAREN EMULGEL BACK + MUSCLE PAIN [Concomitant]
     Active Substance: DICLOFENAC DIETHYLAMINE
     Dosage: 2.32 %
     Route: 065
  3. FRAGMIN [Concomitant]
     Active Substance: DALTEPARIN SODIUM
     Dosage: 12500 DF, UNK
     Route: 065
  4. MAXIDEX [Concomitant]
     Active Substance: DEXAMETHASONE
     Dosage: 1 DROP (GTT)
     Route: 065
  5. RED BLOOD CELLS [Concomitant]
     Active Substance: HUMAN RED BLOOD CELL
     Dosage: 1 DF
     Route: 065
  6. RED BLOOD CELLS [Concomitant]
     Active Substance: HUMAN RED BLOOD CELL
     Dosage: 1 DF
     Route: 065
  7. RED BLOOD CELLS [Concomitant]
     Active Substance: HUMAN RED BLOOD CELL
     Dosage: 1 DF
     Route: 065
  8. AROMASIN [Suspect]
     Active Substance: EXEMESTANE
     Indication: BREAST CANCER METASTATIC
     Dosage: 25 MG
     Route: 065
     Dates: start: 201703, end: 20170410
  9. ATORVASTATIN [Concomitant]
     Active Substance: ATORVASTATIN
     Dosage: UNK
     Route: 065
  10. LASIX [Concomitant]
     Active Substance: FUROSEMIDE
     Dosage: 10 MG
     Route: 065
  11. VENLAFAXINE HYDROCHLORIDE. [Concomitant]
     Active Substance: VENLAFAXINE HYDROCHLORIDE
     Dosage: 37.5 MG
     Route: 065
  12. AFINITOR [Suspect]
     Active Substance: EVEROLIMUS
     Indication: BREAST CANCER
     Dosage: 10 MG, 1X/DAY
     Route: 048
     Dates: start: 201703, end: 20170410
  13. BETAHISTINE [Concomitant]
     Active Substance: BETAHISTINE
     Dosage: 8 MG
     Route: 065
  14. CEFPROZIL. [Concomitant]
     Active Substance: CEFPROZIL
     Dosage: 500 MG
     Route: 065
  15. XGEVA [Concomitant]
     Active Substance: DENOSUMAB
     Dosage: 120 MG
     Route: 058
  16. AMOXICILLIN SODIUM [Concomitant]
     Active Substance: AMOXICILLIN SODIUM
     Dosage: 1500 MG
     Route: 065
  17. GRAVOL [Concomitant]
     Active Substance: DIMENHYDRINATE
     Dosage: UNK
     Route: 065
  18. PAMIDRONATE DISODIUM. [Concomitant]
     Active Substance: PAMIDRONATE DISODIUM
     Dosage: 90 MG
     Route: 065
  19. MEROPENEM TRIHYDRATE [Concomitant]
     Active Substance: MEROPENEM
     Dosage: 1 G
     Route: 065
  20. OCUFLOX [Concomitant]
     Active Substance: OFLOXACIN
     Dosage: 1 DROP (GTT)
     Route: 065
  21. CEFAZOLIN SODIUM. [Concomitant]
     Active Substance: CEFAZOLIN SODIUM
     Dosage: 2 G
     Route: 065
  22. FRAGMIN [Concomitant]
     Active Substance: DALTEPARIN SODIUM
     Dosage: 14500 DF, UNK
     Route: 065
  23. HUMALOG [Concomitant]
     Active Substance: INSULIN LISPRO
     Dosage: 2 IU
     Route: 065
  24. NITROGLYCERIN. [Concomitant]
     Active Substance: NITROGLYCERIN
     Dosage: UNK
     Route: 065
  25. PREDNISOLONE. [Concomitant]
     Active Substance: PREDNISOLONE
     Dosage: 5 ML
     Route: 065
  26. ACETYLSALICYLIC ACID [Concomitant]
     Active Substance: ASPIRIN
     Dosage: UNK
     Route: 065
  27. RED BLOOD CELLS [Concomitant]
     Active Substance: HUMAN RED BLOOD CELL
     Dosage: 2 DF
     Route: 065
  28. RED BLOOD CELLS [Concomitant]
     Active Substance: HUMAN RED BLOOD CELL
     Dosage: 2 DF
     Route: 065

REACTIONS (30)
  - Confusional state [Not Recovered/Not Resolved]
  - Streptococcal bacteraemia [Recovered/Resolved]
  - ADAMTS13 activity decreased [Unknown]
  - Epistaxis [Not Recovered/Not Resolved]
  - General physical health deterioration [Not Recovered/Not Resolved]
  - Myelodysplastic syndrome [Not Recovered/Not Resolved]
  - Vomiting [Recovered/Resolved]
  - Facial paralysis [Recovering/Resolving]
  - Vomiting [Recovered/Resolved]
  - Thrombotic microangiopathy [Recovering/Resolving]
  - Abdominal pain [Recovered/Resolved]
  - Cough [Not Recovered/Not Resolved]
  - Myocardial infarction [Not Recovered/Not Resolved]
  - Neoplasm progression [Not Recovered/Not Resolved]
  - Anaemia macrocytic [Recovering/Resolving]
  - Concomitant disease aggravated [Recovering/Resolving]
  - Fatigue [Not Recovered/Not Resolved]
  - Headache [Recovered/Resolved]
  - Ischaemic stroke [Recovering/Resolving]
  - Nausea [Recovered/Resolved]
  - Nausea [Recovered/Resolved]
  - Oedema peripheral [Not Recovered/Not Resolved]
  - Back pain [Recovering/Resolving]
  - Dizziness [Recovered/Resolved]
  - Dysarthria [Recovering/Resolving]
  - Haemoglobin decreased [Recovering/Resolving]
  - Venous thrombosis limb [Not Recovered/Not Resolved]
  - Chest pain [Recovering/Resolving]
  - Muscular weakness [Recovering/Resolving]
  - Pain in extremity [Not Recovered/Not Resolved]

NARRATIVE: CASE EVENT DATE: 20170405
